FAERS Safety Report 18304501 (Version 3)
Quarter: 2020Q4

REPORT INFORMATION
  Report Type: Spontaneous
  Country: US (occurrence: US)
  Receive Date: 20200923
  Receipt Date: 20201019
  Transmission Date: 20210113
  Serious: No
  Sender: FDA-Public Use
  Company Number: US-PFIZER INC-2020364184

PATIENT
  Age: 72 Year
  Sex: Female

DRUGS (2)
  1. IBRANCE [Suspect]
     Active Substance: PALBOCICLIB
     Dosage: 125 MG, CYCLIC (TAKE 1 TAB BY MOUTH EVERY DAY FOR 21 DAYS, THEN REST FOR 7 DAYS)
     Route: 048
     Dates: start: 20201012
  2. IBRANCE [Suspect]
     Active Substance: PALBOCICLIB
     Indication: BREAST CANCER FEMALE
     Dosage: 125 MG, CYCLIC (EVERY DAY FOR 21 DAYS, THEN REST FOR 7 DAYS)
     Route: 048
     Dates: start: 20200814

REACTIONS (2)
  - Blood count abnormal [Unknown]
  - Pain in extremity [Not Recovered/Not Resolved]
